FAERS Safety Report 9228663 (Version 4)
Quarter: 2013Q2

REPORT INFORMATION
  Report Type: Report from Study
  Country: US (occurrence: US)
  Receive Date: 20130412
  Receipt Date: 20130506
  Transmission Date: 20140414
  Serious: Yes (Death, Hospitalization)
  Sender: FDA-Public Use
  Company Number: US-BRISTOL-MYERS SQUIBB COMPANY-18743351

PATIENT
  Age: 65 Year
  Sex: Male
  Weight: 88.5 kg

DRUGS (8)
  1. PACLITAXEL [Suspect]
     Indication: NEOPLASM MALIGNANT
     Dosage: LAST DOSE:11MAR2013
     Route: 042
     Dates: start: 20130305, end: 20130311
  2. RAMUCIRUMAB [Suspect]
     Indication: NEOPLASM MALIGNANT
     Dosage: LAST DOSE:05MAR2013
     Route: 042
     Dates: start: 20130211, end: 20130305
  3. DICLOFENAC [Concomitant]
     Dates: start: 20130311
  4. AMLODIPINE [Concomitant]
     Dates: start: 2009
  5. HYDROCHLOROTHIAZIDE [Concomitant]
     Dates: start: 2012
  6. METHOCARBAMOL [Concomitant]
     Dates: start: 2012
  7. SIMVASTATIN [Concomitant]
     Dates: start: 2011
  8. MVI [Concomitant]
     Dates: start: 2002

REACTIONS (4)
  - Hypoxia [Fatal]
  - Sepsis [Unknown]
  - Pneumonia [Unknown]
  - Hyponatraemia [Not Recovered/Not Resolved]
